FAERS Safety Report 17355968 (Version 2)
Quarter: 2020Q1

REPORT INFORMATION
  Report Type: Spontaneous
  Country: US (occurrence: US)
  Receive Date: 20200131
  Receipt Date: 20200204
  Transmission Date: 20200409
  Serious: Yes (Hospitalization, Other)
  Sender: FDA-Public Use
  Company Number: US-PFIZER INC-2020040050

PATIENT
  Age: 75 Year
  Sex: Female

DRUGS (4)
  1. ATIVAN [Suspect]
     Active Substance: LORAZEPAM
     Dosage: UNK, AS NEEDED (1 ATIVAN AT NIGHT, 1 IN MORNING, IT WAS ONLY AS NEEDED)
  2. ATIVAN [Suspect]
     Active Substance: LORAZEPAM
     Dosage: 0.5 MG, UNK
  3. ATIVAN [Suspect]
     Active Substance: LORAZEPAM
     Dosage: 2 MG, UNK
  4. ATIVAN [Suspect]
     Active Substance: LORAZEPAM
     Dosage: 1 MG, UNK
     Dates: start: 1992

REACTIONS (14)
  - Ear pain [Unknown]
  - Head discomfort [Unknown]
  - Gingival pain [Unknown]
  - Myocardial infarction [Unknown]
  - Fibromyalgia [Unknown]
  - Ventricular tachycardia [Unknown]
  - Allergic reaction to excipient [Unknown]
  - Memory impairment [Unknown]
  - Mitral valve prolapse [Unknown]
  - Palpitations [Unknown]
  - Claustrophobia [Unknown]
  - Headache [Unknown]
  - Drug dependence [Unknown]
  - Toothache [Unknown]

NARRATIVE: CASE EVENT DATE: 1997
